FAERS Safety Report 16842189 (Version 1)
Quarter: 2019Q3

REPORT INFORMATION
  Report Type: Report from Study
  Country: None (occurrence: CA)
  Receive Date: 20190923
  Receipt Date: 20190923
  Transmission Date: 20191005
  Serious: Yes (Other)
  Sender: FDA-Public Use
  Company Number: CA-ABBVIE-19K-028-2934581-00

PATIENT
  Sex: Male

DRUGS (2)
  1. HUMIRA [Suspect]
     Active Substance: ADALIMUMAB
     Indication: CROHN^S DISEASE
     Route: 058
     Dates: start: 20160407
  2. CODEINE [Concomitant]
     Active Substance: CODEINE
     Indication: ABDOMINAL DISCOMFORT

REACTIONS (5)
  - Liver disorder [Not Recovered/Not Resolved]
  - Acrochordon [Not Recovered/Not Resolved]
  - Renal disorder [Not Recovered/Not Resolved]
  - Renal disorder [Unknown]
  - Renal impairment [Unknown]
